FAERS Safety Report 15511377 (Version 1)
Quarter: 2018Q4

REPORT INFORMATION
  Report Type: Spontaneous
  Country: US (occurrence: US)
  Receive Date: 20181017
  Receipt Date: 20181017
  Transmission Date: 20190205
  Serious: Yes (Hospitalization)
  Sender: FDA-Public Use
  Company Number: None

PATIENT
  Age: 17 Year
  Sex: Female
  Weight: 49.4 kg

DRUGS (1)
  1. JADENU [Suspect]
     Active Substance: DEFERASIROX
     Indication: IRON OVERLOAD
     Dates: start: 20180501, end: 20180913

REACTIONS (4)
  - Abdominal pain upper [None]
  - Pancreatitis [None]
  - Serum ferritin increased [None]
  - Therapy change [None]

NARRATIVE: CASE EVENT DATE: 20180913
